FAERS Safety Report 21562323 (Version 1)
Quarter: 2022Q4

REPORT INFORMATION
  Report Type: Spontaneous
  Country: US (occurrence: US)
  Receive Date: 20221107
  Receipt Date: 20221107
  Transmission Date: 20230113
  Serious: No
  Sender: FDA-Public Use
  Company Number: US-GALDERMA-US2021016817

PATIENT

DRUGS (3)
  1. METRONIDAZOLE [Suspect]
     Active Substance: METRONIDAZOLE
     Indication: Rosacea
     Dosage: 1 DOSAGE FORM
     Route: 061
  2. COSMETICS [Suspect]
     Active Substance: COSMETICS
     Indication: Therapeutic skin care topical
     Dosage: 1 DOSAGE FORM, BID (TWICE A DAY)
     Route: 061
  3. Neutrogena Sensitive Skin Moisturizer [Concomitant]
     Indication: Therapeutic skin care topical
     Route: 061

REACTIONS (1)
  - Dry skin [Recovered/Resolved]
